FAERS Safety Report 5919347-2 (Version None)
Quarter: 2008Q4

REPORT INFORMATION
  Report Type: 
  Country: None (occurrence: None)
  Receive Date: 20081015
  Receipt Date: 20081009
  Transmission Date: 20090506
  Serious: Yes (Disabling)
  Sender: FDA-Public Use
  Company Number: A0751111A

PATIENT
  Age: 72 Year
  Sex: Female

DRUGS (8)
  1. DYNACIRC CR [Suspect]
     Indication: HYPERTENSION
     Dosage: 10MG PER DAY
     Route: 048
     Dates: start: 20000101
  2. ISRADIPINE [Suspect]
     Indication: HYPERTENSION
     Route: 065
     Dates: start: 20080101, end: 20081002
  3. PREDNISONE [Concomitant]
  4. PYRIDOSTIGMINE BROMIDE [Concomitant]
  5. DYAZIDE [Concomitant]
  6. COZAAR [Concomitant]
  7. MOBID [Concomitant]
  8. METFORMIN [Concomitant]

REACTIONS (1)
  - GINGIVAL PAIN [None]
